FAERS Safety Report 4876157-5 (Version None)
Quarter: 2006Q1

REPORT INFORMATION
  Report Type: 
  Country: None (occurrence: None)
  Receive Date: 20060106
  Receipt Date: 20051227
  Transmission Date: 20060701
  Serious: Yes (Life-Threatening)
  Sender: FDA-Public Use
  Company Number: JP200512000016

PATIENT
  Age: 62 Year
  Sex: Male
  Weight: 58.1 kg

DRUGS (5)
  1. GEMZAR [Suspect]
     Indication: LUNG NEOPLASM MALIGNANT
     Dosage: 1580 MG, OTHER, INTRAVENOUS
     Route: 042
     Dates: start: 20051102, end: 20051109
  2. PARAPLATIN [Concomitant]
  3. ASPIRIN [Concomitant]
  4. ISOSORBIDE DINITRATE [Concomitant]
  5. BISOPROLOL FUMARATE [Concomitant]

REACTIONS (3)
  - ANGINA PECTORIS [None]
  - ELECTROCARDIOGRAM ST SEGMENT ABNORMAL [None]
  - VASOSPASM [None]
